FAERS Safety Report 5592427-X (Version None)
Quarter: 2007Q4

REPORT INFORMATION
  Report Type: 
  Country: None (occurrence: None)
  Receive Date: 20071217
  Receipt Date: 20070920
  Transmission Date: 20080405
  Serious: No
  Sender: FDA-Public Use
  Company Number: BDI-010210

PATIENT
  Age: 36 Year
  Sex: Female

DRUGS (1)
  1. MULTIHANCE [Suspect]
     Dosage: 11 ML ONCE IV
     Route: 042
     Dates: start: 20070919, end: 20070919

REACTIONS (2)
  - HYPERSENSITIVITY [None]
  - SYNCOPE VASOVAGAL [None]
